FAERS Safety Report 8579123-1 (Version None)
Quarter: 2012Q3

REPORT INFORMATION
  Report Type: 
  Country: None (occurrence: None)
  Receive Date: 20120808
  Receipt Date: 20120802
  Transmission Date: 20120928
  Serious: Yes (Hospitalization, Other)
  Sender: FDA-Public Use
  Company Number: CA-ROCHE-1074814

PATIENT
  Sex: Male

DRUGS (4)
  1. AVASTIN [Suspect]
     Indication: GLIOBLASTOMA
     Route: 042
     Dates: start: 20080918
  2. AVASTIN [Suspect]
     Route: 042
     Dates: start: 20101216
  3. AVASTIN [Suspect]
     Route: 042
     Dates: start: 20101124
  4. AVASTIN [Suspect]
     Route: 042
     Dates: start: 20100729

REACTIONS (4)
  - NEOPLASM [None]
  - NEOPLASM RECURRENCE [None]
  - HYPERTENSION [None]
  - DISEASE PROGRESSION [None]
